FAERS Safety Report 25041828 (Version 1)
Quarter: 2025Q1

REPORT INFORMATION
  Report Type: Spontaneous
  Country: US (occurrence: US)
  Receive Date: 20250305
  Receipt Date: 20250305
  Transmission Date: 20250408
  Serious: No
  Sender: Kenvue
  Company Number: US-KENVUE-20250201157

PATIENT
  Sex: Female

DRUGS (1)
  1. IMODIUM MULTI-SYMPTOM RELIEF [Suspect]
     Active Substance: DIMETHICONE\LOPERAMIDE HYDROCHLORIDE
     Indication: Diarrhoea
     Route: 048
     Dates: start: 20250202

REACTIONS (4)
  - Diarrhoea [Not Recovered/Not Resolved]
  - Flatulence [Unknown]
  - Muscle spasms [Unknown]
  - Haemorrhoids [Unknown]
